FAERS Safety Report 17362065 (Version 1)
Quarter: 2020Q1

REPORT INFORMATION
  Report Type: Spontaneous
  Country: KR (occurrence: KR)
  Receive Date: 20200203
  Receipt Date: 20200203
  Transmission Date: 20200409
  Serious: Yes (Death, Other)
  Sender: FDA-Public Use
  Company Number: NVSC2020KR026744

PATIENT
  Age: 57 Year
  Sex: Female

DRUGS (3)
  1. ROMIPLOSTIM [Suspect]
     Active Substance: ROMIPLOSTIM
     Indication: IMMUNE THROMBOCYTOPENIC PURPURA
     Dosage: 250 UG
     Route: 065
     Dates: start: 20170222
  2. ROMIPLOSTIM [Suspect]
     Active Substance: ROMIPLOSTIM
     Dosage: 500 UG
     Route: 065
     Dates: start: 20170602
  3. REVOLADE [Suspect]
     Active Substance: ELTROMBOPAG
     Indication: IMMUNE THROMBOCYTOPENIC PURPURA
     Dosage: 25 MG
     Route: 065
     Dates: start: 20170429

REACTIONS (4)
  - Therapy non-responder [Unknown]
  - Pulmonary haemorrhage [Fatal]
  - Hepatotoxicity [Unknown]
  - Mouth haemorrhage [Recovering/Resolving]

NARRATIVE: CASE EVENT DATE: 20170506
